APPROVED DRUG PRODUCT: CLEMASTINE FUMARATE
Active Ingredient: CLEMASTINE FUMARATE
Strength: 2.68MG
Dosage Form/Route: TABLET;ORAL
Application: A073283 | Product #001
Applicant: GENUS LIFESCIENCES INC
Approved: Jan 31, 1992 | RLD: No | RS: Yes | Type: RX